FAERS Safety Report 5676273-4 (Version None)
Quarter: 2008Q1

REPORT INFORMATION
  Report Type: 
  Country: None (occurrence: None)
  Receive Date: 20080321
  Receipt Date: 20080318
  Transmission Date: 20080703
  Serious: Yes (Hospitalization)
  Sender: FDA-Public Use
  Company Number: US-BOEHRINGER INGELHEIM GMBH, GERMANY-2008-BP-04073RO

PATIENT
  Age: 62 Year
  Sex: Male
  Weight: 107 kg

DRUGS (16)
  1. LIDOCAINE [Suspect]
     Indication: ANAESTHESIA
     Route: 048
  2. LIDOCAINE [Suspect]
  3. LIDOCAINE [Suspect]
     Route: 061
  4. MIDAZOLAM HCL [Suspect]
     Indication: SEDATION
  5. BENZOCAINE [Suspect]
     Indication: ANAESTHESIA
     Route: 061
  6. FENTANYL [Suspect]
     Indication: SEDATION
  7. CEPHALEXIN [Concomitant]
  8. AMITRIPTYLINE HCL [Concomitant]
  9. AMLODIPINE [Concomitant]
  10. ENOXAPARIN SODIUM [Concomitant]
  11. GABAPENTIN [Concomitant]
  12. PANTOPRAZOLE SODIUM [Concomitant]
  13. OXYCODONE HCL [Concomitant]
  14. PRAVASTATIN [Concomitant]
  15. OXYGEN [Concomitant]
     Indication: METHAEMOGLOBINAEMIA
  16. STEROID THERAPY [Concomitant]
     Indication: COMPLEX REGIONAL PAIN SYNDROME

REACTIONS (1)
  - METHAEMOGLOBINAEMIA [None]
